FAERS Safety Report 8459746-0 (Version None)
Quarter: 2012Q2

REPORT INFORMATION
  Report Type: 
  Country: None (occurrence: None)
  Receive Date: 20120622
  Receipt Date: 20120613
  Transmission Date: 20120825
  Serious: Yes (Other)
  Sender: FDA-Public Use
  Company Number: CA-MERCK-1206USA02142

PATIENT
  Age: 3 Year
  Sex: Female
  Weight: 12 kg

DRUGS (3)
  1. FLOVENT HFA [Concomitant]
     Route: 065
  2. ALBUTEROL [Concomitant]
     Route: 065
  3. SINGULAIR [Suspect]
     Route: 048

REACTIONS (9)
  - CRYING [None]
  - ANGER [None]
  - PYREXIA [None]
  - LOSS OF CONSCIOUSNESS [None]
  - EPISTAXIS [None]
  - AGGRESSION [None]
  - MYDRIASIS [None]
  - COUGH [None]
  - IRRITABILITY [None]
